FAERS Safety Report 22160856 (Version 1)
Quarter: 2023Q1

REPORT INFORMATION
  Report Type: Spontaneous
  Country: US (occurrence: None)
  Receive Date: 20230331
  Receipt Date: 20230331
  Transmission Date: 20230417
  Serious: No
  Sender: FDA-Public Use
  Company Number: None

PATIENT
  Age: 34 Year
  Sex: Male
  Weight: 90 kg

DRUGS (1)
  1. HERBALS\MITRAGYNINE [Suspect]
     Active Substance: HERBALS\MITRAGYNINE

REACTIONS (7)
  - Paradoxical drug reaction [None]
  - Paraesthesia [None]
  - Sensory disturbance [None]
  - Nausea [None]
  - Vomiting [None]
  - Headache [None]
  - Product complaint [None]

NARRATIVE: CASE EVENT DATE: 20230330
